FAERS Safety Report 12668509 (Version 1)
Quarter: 2016Q3

REPORT INFORMATION
  Report Type: Spontaneous
  Country: BR (occurrence: BR)
  Receive Date: 20160819
  Receipt Date: 20160819
  Transmission Date: 20161109
  Serious: Yes (Hospitalization, Other)
  Sender: FDA-Public Use
  Company Number: BR-009507513-1605BRA001262

PATIENT
  Age: 28 Year
  Sex: Female
  Weight: 71 kg

DRUGS (2)
  1. NUVARING [Suspect]
     Active Substance: ETHINYL ESTRADIOL\ETONOGESTREL
     Dosage: UNK
     Route: 067
     Dates: end: 20160809
  2. NUVARING [Suspect]
     Active Substance: ETHINYL ESTRADIOL\ETONOGESTREL
     Indication: CONTRACEPTION
     Dosage: 3 WEEKS OF USE AND 1 WEEK OF PAUSE.
     Route: 067
     Dates: start: 2002

REACTIONS (8)
  - Metabolic surgery [Unknown]
  - Cholelithiasis [Recovered/Resolved]
  - Hepatic steatosis [Recovering/Resolving]
  - Incorrect drug administration duration [Unknown]
  - Dysmenorrhoea [Not Recovered/Not Resolved]
  - Menorrhagia [Not Recovered/Not Resolved]
  - Menorrhagia [Recovered/Resolved]
  - Withdrawal bleed [Recovered/Resolved]

NARRATIVE: CASE EVENT DATE: 2002
